FAERS Safety Report 9797885 (Version 4)
Quarter: 2014Q3

REPORT INFORMATION
  Report Type: Spontaneous
  Country: FR (occurrence: FR)
  Receive Date: 20140106
  Receipt Date: 20140711
  Transmission Date: 20150326
  Serious: Yes (Hospitalization)
  Sender: FDA-Public Use
  Company Number: PHHY2013FR154142

PATIENT
  Age: 48 Year
  Sex: Female

DRUGS (7)
  1. LORAZEPAM. [Concomitant]
     Active Substance: LORAZEPAM
     Dosage: 2.5 MG, QD
     Route: 048
  2. PRAVASTATIN SODIUM. [Concomitant]
     Active Substance: PRAVASTATIN SODIUM
     Indication: DYSLIPIDAEMIA
     Dosage: 40 MG, QD
     Route: 048
  3. FONGAMIL [Concomitant]
     Dosage: UNK UKN, BID
     Dates: start: 20131001, end: 20131118
  4. LAMISIL [Suspect]
     Active Substance: TERBINAFINE HYDROCHLORIDE
     Indication: FUNGAL INFECTION
     Dosage: UNK UKN, UNK
     Route: 048
     Dates: start: 20131106, end: 20131119
  5. DOLIPRANE [Concomitant]
     Active Substance: ACETAMINOPHEN
     Dosage: 1 G, TID
     Dates: start: 2013
  6. ATENOLOL. [Concomitant]
     Active Substance: ATENOLOL
     Indication: HYPERTENSION
     Dosage: 50 MG, QD
     Route: 048
     Dates: start: 2012
  7. FONGAMIL [Concomitant]
     Dosage: UNK UKN, UNK
     Route: 003
     Dates: start: 20131105, end: 20131126

REACTIONS (14)
  - Acute generalised exanthematous pustulosis [Recovered/Resolved]
  - Rash pustular [Unknown]
  - Chills [Recovered/Resolved]
  - Erythema multiforme [Unknown]
  - Dermatitis bullous [Unknown]
  - Dermatitis exfoliative [Unknown]
  - Pruritus [Recovered/Resolved]
  - Pyrexia [Recovered/Resolved]
  - Erythema [Recovered/Resolved]
  - Seborrhoeic keratosis [Unknown]
  - Rash maculo-papular [Unknown]
  - Skin exfoliation [Unknown]
  - Purpura [Unknown]
  - Eosinophilia [Recovered/Resolved]

NARRATIVE: CASE EVENT DATE: 20131121
